FAERS Safety Report 21246665 (Version 1)
Quarter: 2022Q3

REPORT INFORMATION
  Report Type: Spontaneous
  Country: CN (occurrence: None)
  Receive Date: 20220824
  Receipt Date: 20220824
  Transmission Date: 20221027
  Serious: Yes (Other)
  Sender: FDA-Public Use
  Company Number: CN-ROCHE-3163758

PATIENT
  Age: 58 Year
  Sex: Male
  Weight: 83 kg

DRUGS (7)
  1. ZELBORAF [Suspect]
     Active Substance: VEMURAFENIB
     Indication: Lung neoplasm malignant
     Route: 048
     Dates: start: 20220224, end: 20220226
  2. TECENTRIQ [Suspect]
     Active Substance: ATEZOLIZUMAB
     Indication: Lung neoplasm malignant
     Route: 065
     Dates: start: 20210702
  3. CARBOPLATIN [Concomitant]
     Active Substance: CARBOPLATIN
     Indication: Lung neoplasm malignant
     Dates: start: 20210623
  4. PEMETREXED [Concomitant]
     Active Substance: PEMETREXED
     Indication: Lung neoplasm malignant
     Dates: start: 20210623
  5. DENOSUMAB [Concomitant]
     Active Substance: DENOSUMAB
     Dates: start: 20210721, end: 20220222
  6. DABRAFENIB [Concomitant]
     Active Substance: DABRAFENIB
     Indication: Lung neoplasm malignant
     Dates: start: 20210721, end: 20220222
  7. TRAMETINIB [Concomitant]
     Active Substance: TRAMETINIB
     Indication: Lung neoplasm malignant
     Dates: start: 20210721, end: 20220222

REACTIONS (2)
  - Pneumonia [Recovering/Resolving]
  - Disease progression [Unknown]

NARRATIVE: CASE EVENT DATE: 20220211
